FAERS Safety Report 9106490 (Version 1)
Quarter: 2013Q1

REPORT INFORMATION
  Report Type: Spontaneous
  Country: US (occurrence: US)
  Receive Date: 20130221
  Receipt Date: 20130221
  Transmission Date: 20140127
  Serious: No
  Sender: FDA-Public Use
  Company Number: US-B.I. PHARMACEUTICALS,INC./RIDGEFIELD-2013-BI-04329BP

PATIENT
  Sex: 0

DRUGS (1)
  1. PRADAXA [Suspect]
     Route: 048

REACTIONS (2)
  - Migraine [Unknown]
  - Psychomotor hyperactivity [Unknown]
